FAERS Safety Report 11046054 (Version 2)
Quarter: 2015Q2

REPORT INFORMATION
  Report Type: Spontaneous
  Country: US (occurrence: US)
  Receive Date: 20150418
  Receipt Date: 20150524
  Transmission Date: 20150821
  Serious: No
  Sender: FDA-Public Use
  Company Number: US-JNJFOC-20130115349

PATIENT
  Age: 26 Year
  Sex: Male
  Weight: 79.38 kg

DRUGS (1)
  1. KETOCONAZOLE 2% [Suspect]
     Active Substance: KETOCONAZOLE
     Indication: DRY SKIN
     Route: 061
     Dates: start: 20130116

REACTIONS (4)
  - Drug administered at inappropriate site [Not Recovered/Not Resolved]
  - Product use issue [Unknown]
  - Pruritus [Not Recovered/Not Resolved]
  - Pre-existing disease [Not Recovered/Not Resolved]

NARRATIVE: CASE EVENT DATE: 20130116
